FAERS Safety Report 16880312 (Version 3)
Quarter: 2019Q4

REPORT INFORMATION
  Report Type: Spontaneous
  Country: FR (occurrence: FR)
  Receive Date: 20191003
  Receipt Date: 20191122
  Transmission Date: 20200122
  Serious: Yes (Hospitalization, Other)
  Sender: FDA-Public Use
  Company Number: FR-MYLANLABS-2019M1091433

PATIENT
  Age: 68 Year
  Sex: Male

DRUGS (8)
  1. WELLVONE [Suspect]
     Active Substance: ATOVAQUONE
     Indication: ANTIFUNGAL PROPHYLAXIS
     Dosage: UNK
     Route: 048
     Dates: start: 20160307, end: 20160827
  2. VENLAFAXINE [Suspect]
     Active Substance: VENLAFAXINE HYDROCHLORIDE
     Indication: DEPRESSION
     Dosage: 75 MILLIGRAM, QD
     Route: 048
     Dates: end: 20160828
  3. NOVATREX (METHOTREXATE) [Suspect]
     Active Substance: METHOTREXATE SODIUM
     Dosage: POSOLOGY 1/WEEK THEN 4/WEEK
     Route: 048
     Dates: start: 20160512, end: 20160823
  4. CORTANCYL [Suspect]
     Active Substance: PREDNISONE
     Indication: POLYCHONDRITIS
     Dosage: 35 MILLIGRAM, QD, IN DECLINE
     Route: 048
  5. SPECIAFOLDINE [Concomitant]
     Active Substance: FOLIC ACID
     Dosage: UNK
     Dates: start: 20160307
  6. INNOVAIR [Concomitant]
     Active Substance: BECLOMETHASONE DIPROPIONATE\FORMOTEROL
     Dosage: 4 DOSAGE FORM, QD, 2 PUFF(S), BID
     Route: 065
  7. INNOVAIR [Concomitant]
     Active Substance: BECLOMETHASONE DIPROPIONATE\FORMOTEROL
     Dosage: 2 SPRAYS MORNING AND EVENING
     Route: 065
  8. NOVATREX (METHOTREXATE) [Suspect]
     Active Substance: METHOTREXATE SODIUM
     Indication: POLYCHONDRITIS
     Dosage: 4 DOSAGE FORM, QW
     Route: 048
     Dates: start: 20160512

REACTIONS (7)
  - Hallucination, auditory [Recovered/Resolved]
  - Catatonia [Recovered/Resolved]
  - Delirium [Recovered/Resolved]
  - Persecutory delusion [Recovered/Resolved]
  - Psychomotor skills impaired [Recovered/Resolved]
  - Apraxia [Recovered/Resolved]
  - Hallucination, visual [Recovered/Resolved]

NARRATIVE: CASE EVENT DATE: 201606
